FAERS Safety Report 14326700 (Version 1)
Quarter: 2017Q4

REPORT INFORMATION
  Report Type: Spontaneous
  Country: US (occurrence: US)
  Receive Date: 20171226
  Receipt Date: 20171226
  Transmission Date: 20180321
  Serious: Yes (Other)
  Sender: FDA-Public Use
  Company Number: None

PATIENT
  Sex: Female
  Weight: 76.5 kg

DRUGS (18)
  1. LEVAQUIN [Suspect]
     Active Substance: LEVOFLOXACIN
     Indication: PNEUMONIA
     Route: 048
     Dates: start: 20150919, end: 20150922
  2. BIOIDENTICAL HORMONE REPLACEMENT TROCHE [Concomitant]
  3. PREGNENOLONE [Concomitant]
     Active Substance: PREGNENOLONE
  4. N-ACETYL CYSTEINE [Concomitant]
  5. MAGNESIUM CHLORIDE BRINE (SPRAY) [Concomitant]
  6. ALIGN PROBIOTIC (GENERIC) [Concomitant]
  7. TESTOSTERONE. [Concomitant]
     Active Substance: TESTOSTERONE
  8. COQ10 [Concomitant]
     Active Substance: UBIDECARENONE
  9. VITAMIN D [Concomitant]
     Active Substance: CHOLECALCIFEROL
  10. BUPROPION HYDROCHLORIDE XL [Concomitant]
     Active Substance: BUPROPION HYDROCHLORIDE
  11. ESTRADIOL. [Concomitant]
     Active Substance: ESTRADIOL
  12. PROGESTERONE. [Concomitant]
     Active Substance: PROGESTERONE
  13. ESTRIOL [Concomitant]
     Active Substance: ESTRIOL
  14. CENTRUM SILVER FOR WOMEN [Concomitant]
     Active Substance: MINERALS\VITAMINS
  15. JUICE PLUS WHOLE FOOD CAPSULES-FRUIT/VEGETABLE/VINEYARD BLENDS [Concomitant]
  16. ATENOLOL. [Concomitant]
     Active Substance: ATENOLOL
  17. OMEGAMOOD 3 [Concomitant]
  18. VENLAFAXINE XR [Concomitant]
     Active Substance: VENLAFAXINE HYDROCHLORIDE

REACTIONS (3)
  - Electric shock [None]
  - Tendon injury [None]
  - Pain [None]

NARRATIVE: CASE EVENT DATE: 20150922
